FAERS Safety Report 20663441 (Version 1)
Quarter: 2022Q2

REPORT INFORMATION
  Report Type: Other
  Country: US (occurrence: US)
  Receive Date: 20220401
  Receipt Date: 20220401
  Transmission Date: 20220721
  Serious: Yes (Other)
  Sender: FDA-Public Use
  Company Number: US-GW PHARMA-202203USGW01597

PATIENT

DRUGS (18)
  1. EPIDIOLEX [Suspect]
     Active Substance: CANNABIDIOL
     Indication: Febrile infection-related epilepsy syndrome
     Dosage: UNK
  2. BRIVIACT [Suspect]
     Active Substance: BRIVARACETAM
     Indication: Seizure
     Dosage: UNKNOWN
     Route: 065
  3. DEPAKOTE [Suspect]
     Active Substance: DIVALPROEX SODIUM
     Indication: Seizure
     Dosage: UNKNOWN
     Route: 065
  4. FOSPHENYTOIN [Suspect]
     Active Substance: FOSPHENYTOIN
     Indication: Seizure
     Dosage: UNKNOWN
     Route: 065
  5. FYCOMPA [Suspect]
     Active Substance: PERAMPANEL
     Indication: Seizure
     Dosage: UNKNOWN
     Route: 065
  6. KETAMINE [Suspect]
     Active Substance: KETAMINE
     Indication: Seizure
     Dosage: UNKNOWN
     Route: 065
  7. KEPPRA [Suspect]
     Active Substance: LEVETIRACETAM
     Indication: Seizure
     Dosage: UNKNOWN
     Route: 065
  8. LORAZEPAM [Suspect]
     Active Substance: LORAZEPAM
     Indication: Seizure
     Dosage: UNKNOWN
     Route: 065
  9. MIDAZOLAM [Suspect]
     Active Substance: MIDAZOLAM
     Indication: Seizure
     Dosage: UNKNOWN
     Route: 065
  10. ONFI [Suspect]
     Active Substance: CLOBAZAM
     Indication: Seizure
     Dosage: UNKNOWN
     Route: 065
  11. PHENOBARBITAL [Suspect]
     Active Substance: PHENOBARBITAL
     Indication: Seizure
     Dosage: UNKNOWN
     Route: 065
  12. PHENYTOIN [Suspect]
     Active Substance: PHENYTOIN
     Indication: Seizure
     Dosage: UNKNOWN
     Route: 065
  13. SABRIL [Suspect]
     Active Substance: VIGABATRIN
     Indication: Seizure
     Dosage: UNK
     Route: 065
  14. TOPAMAX [Suspect]
     Active Substance: TOPIRAMATE
     Indication: Seizure
     Dosage: UNK
     Route: 065
  15. VIMPAT [Suspect]
     Active Substance: LACOSAMIDE
     Indication: Seizure
     Dosage: UNKNOWN
     Route: 065
  16. ACYCLOVIR [Concomitant]
     Active Substance: ACYCLOVIR
     Indication: Evidence based treatment
     Dosage: UNKNOWN
     Route: 065
  17. CEFTRIAXONE [Concomitant]
     Active Substance: CEFTRIAXONE
     Indication: Evidence based treatment
     Dosage: UNKNOWN
     Route: 065
  18. VANCOMYCIN [Concomitant]
     Active Substance: VANCOMYCIN
     Indication: Evidence based treatment
     Dosage: UNKNOWN
     Route: 065

REACTIONS (4)
  - Seizure [Unknown]
  - Status epilepticus [Unknown]
  - Multiple-drug resistance [Unknown]
  - Product use in unapproved indication [Unknown]
